FAERS Safety Report 15360147 (Version 1)
Quarter: 2018Q3

REPORT INFORMATION
  Report Type: Spontaneous
  Country: US (occurrence: US)
  Receive Date: 20180830
  Receipt Date: 20180830
  Transmission Date: 20181010
  Serious: No
  Sender: FDA-Public Use
  Company Number: None

PATIENT
  Age: 66 Year
  Sex: Female

DRUGS (1)
  1. GLEEVEC [Suspect]
     Active Substance: IMATINIB MESYLATE
     Route: 048
     Dates: start: 201805, end: 201806

REACTIONS (3)
  - Product substitution issue [None]
  - Lacrimation increased [None]
  - Periorbital oedema [None]

NARRATIVE: CASE EVENT DATE: 20180601
